FAERS Safety Report 8621317-0 (Version None)
Quarter: 2012Q3

REPORT INFORMATION
  Report Type: 
  Country: None (occurrence: None)
  Receive Date: 20120824
  Receipt Date: 20120821
  Transmission Date: 20120928
  Serious: Yes (Hospitalization, Other)
  Sender: FDA-Public Use
  Company Number: CO-PFIZER INC-2012206317

PATIENT
  Sex: Female

DRUGS (2)
  1. LYRICA [Suspect]
     Indication: TRIGEMINAL NERVE DISORDER
     Dosage: 75 MG, 1X/DAY
     Route: 048
     Dates: start: 20090101, end: 20120701
  2. ASPIRIN [Concomitant]
     Indication: THROMBOSIS
     Dosage: 100 MG, 1X/DAY
     Route: 048
     Dates: start: 20080101

REACTIONS (2)
  - HYPERSENSITIVITY [None]
  - ANAPHYLACTIC SHOCK [None]
